FAERS Safety Report 13868485 (Version 2)
Quarter: 2017Q3

REPORT INFORMATION
  Report Type: Spontaneous
  Country: DE (occurrence: DE)
  Receive Date: 20170815
  Receipt Date: 20170911
  Transmission Date: 20171127
  Serious: Yes (Hospitalization)
  Sender: FDA-Public Use
  Company Number: DE-DEXPHARM-20160207

PATIENT
  Age: 75 Year
  Sex: Female

DRUGS (7)
  1. PIPAMPERONE [Suspect]
     Active Substance: PIPAMPERONE
  2. RISPERIDONE. [Suspect]
     Active Substance: RISPERIDONE
  3. DONEPEZIL. [Suspect]
     Active Substance: DONEPEZIL
     Indication: DEMENTIA ALZHEIMER^S TYPE
  4. TORASEMIDE [Concomitant]
     Active Substance: TORSEMIDE
  5. PIPAMPERONE [Suspect]
     Active Substance: PIPAMPERONE
  6. LORAZEPAM. [Concomitant]
     Active Substance: LORAZEPAM
  7. LORAZEPAM. [Concomitant]
     Active Substance: LORAZEPAM
     Indication: SEDATION
     Dosage: 1-2 MG/DAY

REACTIONS (1)
  - Hypothermia [Recovered/Resolved]
